FAERS Safety Report 5305745-7 (Version None)
Quarter: 2007Q2

REPORT INFORMATION
  Report Type: 
  Country: None (occurrence: None)
  Receive Date: 20070416
  Receipt Date: 20070404
  Transmission Date: 20071010
  Serious: Yes (Other)
  Sender: FDA-Public Use
  Company Number: 2007-00981

PATIENT
  Age: 53 Year
  Sex: 0

DRUGS (7)
  1. VELCADE [Suspect]
     Indication: MULTIPLE MYELOMA
  2. DOXORUBICIN HCL [Suspect]
     Indication: MULTIPLE MYELOMA
  3. DEXAMETHASONE [Suspect]
     Indication: MULTIPLE MYELOMA
  4. VALACYCLOVIR [Concomitant]
  5. FLUCONAZOLE [Concomitant]
  6. CLARITHROMYCIN [Concomitant]
  7. PANTOPRAZOLE SODIUM [Concomitant]

REACTIONS (3)
  - APATHY [None]
  - DEPRESSION [None]
  - DISTURBANCE IN ATTENTION [None]
